FAERS Safety Report 21784061 (Version 2)
Quarter: 2023Q1

REPORT INFORMATION
  Report Type: Report from Study
  Country: FR (occurrence: FR)
  Receive Date: 20221227
  Receipt Date: 20230112
  Transmission Date: 20230418
  Serious: Yes (Other)
  Sender: FDA-Public Use
  Company Number: FR-BAYER-2022P029568

PATIENT
  Age: 44 Year
  Sex: Male

DRUGS (4)
  1. CIPROFLOXACIN [Suspect]
     Active Substance: CIPROFLOXACIN
     Dosage: UNK
     Dates: start: 20170515, end: 20170714
  2. CUBICIN [Concomitant]
     Active Substance: DAPTOMYCIN
  3. AZACTAM [Concomitant]
     Active Substance: AZTREONAM
  4. FLAGYL [Concomitant]
     Active Substance: METRONIDAZOLE\METRONIDAZOLE HYDROCHLORIDE

REACTIONS (2)
  - Pathogen resistance [None]
  - Staphylococcal infection [None]
